FAERS Safety Report 8837948 (Version 1)
Quarter: 2012Q4

REPORT INFORMATION
  Report Type: 
  Country: US (occurrence: US)
  Receive Date: 20121012
  Receipt Date: 20121012
  Transmission Date: 20130627
  Serious: Yes (Other)
  Sender: FDA-Public Use
  Company Number: US-PFIZER INC-2012251250

PATIENT
  Age: 62 Year

DRUGS (7)
  1. LYRICA [Suspect]
     Dosage: 75 mg, 3x/day for 90 days
     Route: 048
     Dates: start: 20120925
  2. NAPROXEN [Concomitant]
     Indication: NECK PAIN
     Dosage: 500 mg, two times daily, as needed, take with food
     Route: 048
     Dates: start: 20120925
  3. FLEXERIL [Concomitant]
     Indication: MUSCLE SPASMS
     Dosage: 10 mg, 1 tablet two to three times daily, as needed for 30 days
     Route: 048
     Dates: start: 20120925
  4. TRAMADOL HYDROCHLORIDE [Concomitant]
     Indication: NECK PAIN
     Dosage: 50 mg, 1 to 2 tablet three times daily, as needed
     Route: 048
     Dates: start: 20120925
  5. TYLENOL ARTHRITIS [Concomitant]
     Dosage: 1 tablet of tylenol arthritis for 30 days
  6. LISINOPRIL W/HYDROCHLOROTHIAZIDE [Concomitant]
     Dosage: 20-25 mg, 1 tablet daily
     Route: 048
     Dates: start: 20120910
  7. FLUOXETINE HYDROCHLORIDE [Concomitant]
     Dosage: 20 mg, 1 tablet capsule daily for 30 days
     Route: 048
     Dates: start: 20120910

REACTIONS (8)
  - Acute sinusitis [Unknown]
  - Essential hypertension [Unknown]
  - Intervertebral disc displacement [Unknown]
  - Depression [Unknown]
  - Fatigue [Unknown]
  - Arthralgia [Unknown]
  - Diarrhoea [Unknown]
  - Neck pain [Unknown]
